FAERS Safety Report 6693666-7 (Version None)
Quarter: 2010Q2

REPORT INFORMATION
  Report Type: 
  Country: None (occurrence: None)
  Receive Date: 20100421
  Receipt Date: 20100408
  Transmission Date: 20101027
  Serious: Yes (Other)
  Sender: FDA-Public Use
  Company Number: 7000960

PATIENT
  Age: 48 Year
  Sex: Female

DRUGS (1)
  1. REBIF [Suspect]
     Indication: MULTIPLE SCLEROSIS
     Dosage: MCG, 3 IN 1 WK, SUBCUTANEOUS
     Route: 058
     Dates: start: 20091124, end: 20091201

REACTIONS (1)
  - TAKAYASU'S ARTERITIS [None]
